FAERS Safety Report 7575704-2 (Version None)
Quarter: 2011Q2

REPORT INFORMATION
  Report Type: 
  Country: None (occurrence: None)
  Receive Date: 20110628
  Receipt Date: 20110621
  Transmission Date: 20111010
  Serious: No
  Sender: FDA-Public Use
  Company Number: US-BIOGENIDEC-2010BI016910

PATIENT
  Age: 47 Year
  Sex: Female

DRUGS (1)
  1. TYSABRI [Suspect]
     Indication: MULTIPLE SCLEROSIS
     Route: 042
     Dates: start: 20080225

REACTIONS (7)
  - PAIN [None]
  - POOR QUALITY SLEEP [None]
  - MEDICAL DEVICE COMPLICATION [None]
  - MUSCULAR WEAKNESS [None]
  - NASAL CONGESTION [None]
  - HEADACHE [None]
  - FATIGUE [None]
